FAERS Safety Report 10127556 (Version 2)
Quarter: 2014Q2

REPORT INFORMATION
  Report Type: Spontaneous
  Country: US (occurrence: US)
  Receive Date: 20140428
  Receipt Date: 20140502
  Transmission Date: 20141212
  Serious: No
  Sender: FDA-Public Use
  Company Number: US-009507513-1404USA012510

PATIENT
  Age: 45 Year
  Sex: Female

DRUGS (5)
  1. NASONEX [Suspect]
     Indication: SEASONAL ALLERGY
     Dosage: 1 SPRAY IN EACH NOSTRIL IN THE MORNING
     Route: 045
  2. NASONEX [Suspect]
     Indication: ASTHMA
  3. CLARITIN [Concomitant]
     Dosage: UNK
  4. ZYRTEC [Concomitant]
  5. ADVAIR [Concomitant]

REACTIONS (4)
  - Therapeutic response decreased [Not Recovered/Not Resolved]
  - Product quality issue [Unknown]
  - Inappropriate schedule of drug administration [Unknown]
  - Underdose [Unknown]
